FAERS Safety Report 10310970 (Version 3)
Quarter: 2014Q3

REPORT INFORMATION
  Report Type: Spontaneous
  Country: FR (occurrence: None)
  Receive Date: 20140714
  Receipt Date: 20140918
  Transmission Date: 20150326
  Serious: Yes (Other)
  Sender: FDA-Public Use
  Company Number: NGX_02417_2014

PATIENT
  Age: 36 Year
  Sex: Female

DRUGS (6)
  1. VERSATIS [Concomitant]
     Active Substance: LIDOCAINE
  2. DONORMYL /00886901/ [Concomitant]
     Active Substance: DOXYLAMINE SUCCINATE\SODIUM BROMIDE\SODIUM PHOSPHATE, DIBASIC, ANHYDROUS\SODIUM SULFATE
  3. TAMOXIFENE [Concomitant]
     Active Substance: TAMOXIFEN
  4. QUTENZA [Suspect]
     Active Substance: CAPSAICIN
     Indication: NEURALGIA
     Dosage: (DF [CUTANEOUS PATCH] TRANSDERMAL)?
     Route: 062
     Dates: start: 20140110
  5. GABAPENTINE [Concomitant]
     Active Substance: GABAPENTIN
  6. TOPALGIC /00599202/ [Concomitant]
     Active Substance: TRAMADOL

REACTIONS (6)
  - Erythema [None]
  - Application site erythema [None]
  - Pruritus [None]
  - Rash [None]
  - Visual impairment [None]
  - Rash papular [None]

NARRATIVE: CASE EVENT DATE: 201401
